FAERS Safety Report 14267443 (Version 1)
Quarter: 2017Q4

REPORT INFORMATION
  Report Type: Spontaneous
  Country: US (occurrence: US)
  Receive Date: 20171209
  Receipt Date: 20171209
  Transmission Date: 20180321
  Serious: Yes (Other)
  Sender: FDA-Public Use
  Company Number: None

PATIENT
  Sex: Female
  Weight: 58.5 kg

DRUGS (1)
  1. REGLAN [Suspect]
     Active Substance: METOCLOPRAMIDE HYDROCHLORIDE
     Indication: NAUSEA
     Dates: start: 20171110, end: 20171112

REACTIONS (4)
  - Unresponsive to stimuli [None]
  - Vomiting [None]
  - Muscle twitching [None]
  - Speech disorder [None]

NARRATIVE: CASE EVENT DATE: 20171112
